FAERS Safety Report 22025385 (Version 1)
Quarter: 2023Q1

REPORT INFORMATION
  Report Type: Spontaneous
  Country: US (occurrence: None)
  Receive Date: 20230223
  Receipt Date: 20230223
  Transmission Date: 20230417
  Serious: No
  Sender: FDA-Public Use
  Company Number: US-ROCHE-3099873

PATIENT
  Sex: Female

DRUGS (5)
  1. XOLAIR [Suspect]
     Active Substance: OMALIZUMAB
     Indication: Asthma
     Dosage: RECEIVES ALL INJECTIONS IN OFFICE
     Route: 058
     Dates: start: 202203
  2. PROAIR HFA [Concomitant]
     Active Substance: ALBUTEROL SULFATE
     Indication: Asthma
     Dosage: 90MCG/108 PER ACTUATION
  3. TRELEGY ELLIPTA [Concomitant]
     Active Substance: FLUTICASONE FUROATE\UMECLIDINIUM BROMIDE\VILANTEROL TRIFENATATE
     Indication: Asthma
     Dosage: 100-2.5-25MCG PER INHALATION
  4. DUONEB [Concomitant]
     Active Substance: ALBUTEROL SULFATE\IPRATROPIUM BROMIDE
     Indication: Asthma
     Dosage: 0.5MG-2.5MG PER 3ML
  5. SINGULARIS SUPERIOR ASHWAGANDHA FORTE [Concomitant]
     Indication: Asthma
     Route: 048

REACTIONS (1)
  - Dyspnoea [Not Recovered/Not Resolved]
